FAERS Safety Report 7798278-X (Version None)
Quarter: 2011Q4

REPORT INFORMATION
  Report Type: 
  Country: None (occurrence: None)
  Receive Date: 20111005
  Receipt Date: 20111003
  Transmission Date: 20120403
  Serious: Yes (Hospitalization, Other)
  Sender: FDA-Public Use
  Company Number: FR-PFIZER INC-2008008910

PATIENT
  Age: 45 Year
  Sex: Female

DRUGS (4)
  1. MILLIGYNON [Concomitant]
     Route: 048
  2. ZOLOFT [Suspect]
     Route: 048
  3. TRIHEXYPHENIDYL HYDROCHLORIDE [Concomitant]
     Route: 048
  4. ORAP [Suspect]
     Route: 048

REACTIONS (5)
  - RHABDOMYOLYSIS [None]
  - VOMITING [None]
  - INAPPROPRIATE ANTIDIURETIC HORMONE SECRETION [None]
  - DIARRHOEA [None]
  - HYPONATRAEMIA [None]
